FAERS Safety Report 10153142 (Version 2)
Quarter: 2014Q2

REPORT INFORMATION
  Report Type: Spontaneous
  Country: US (occurrence: US)
  Receive Date: 20140505
  Receipt Date: 20140505
  Transmission Date: 20141212
  Serious: Yes (Other)
  Sender: FDA-Public Use
  Company Number: US-PFIZER INC-2014107046

PATIENT
  Age: 68 Year
  Sex: Male
  Weight: 67.6 kg

DRUGS (4)
  1. RAPAMUNE [Suspect]
     Indication: RENAL TRANSPLANT
     Dosage: 2 MG, 1X/DAY
     Route: 048
  2. ATENOLOL [Concomitant]
     Dosage: 50 MG, AS NEEDED
  3. CARVEDILOL [Concomitant]
     Indication: PALPITATIONS
     Dosage: UNK
  4. MYFORTIC [Concomitant]

REACTIONS (1)
  - Haemorrhage [Unknown]
